FAERS Safety Report 7415381-4 (Version None)
Quarter: 2011Q2

REPORT INFORMATION
  Report Type: 
  Country: None (occurrence: None)
  Receive Date: 20110414
  Receipt Date: 20110405
  Transmission Date: 20111010
  Serious: Yes (Hospitalization)
  Sender: FDA-Public Use
  Company Number: B0710865A

PATIENT
  Sex: Male
  Weight: 55 kg

DRUGS (1)
  1. FORTUM [Suspect]
     Dosage: 4G PER DAY
     Route: 042
     Dates: start: 20110316, end: 20110318

REACTIONS (5)
  - SOMNOLENCE [None]
  - MYOCLONUS [None]
  - ANTIBIOTIC LEVEL ABOVE THERAPEUTIC [None]
  - DYSARTHRIA [None]
  - ENCEPHALOPATHY [None]
